FAERS Safety Report 9253891 (Version 1)
Quarter: 2013Q2

REPORT INFORMATION
  Report Type: Spontaneous
  Country: NL (occurrence: None)
  Receive Date: 20130419
  Receipt Date: 20130419
  Transmission Date: 20140414
  Serious: Yes (Other)
  Sender: FDA-Public Use
  Company Number: 2013-1217

PATIENT
  Age: 35 Year
  Sex: Male

DRUGS (1)
  1. SOMATULINE [Suspect]
     Dosage: 90 MG (90 MG, 1 IN 28 D)
     Route: 058
     Dates: start: 20110524

REACTIONS (2)
  - Diarrhoea [None]
  - Pituitary tumour removal [None]
